FAERS Safety Report 7562690-4 (Version None)
Quarter: 2011Q2

REPORT INFORMATION
  Report Type: 
  Country: None (occurrence: None)
  Receive Date: 20110622
  Receipt Date: 20110614
  Transmission Date: 20111010
  Serious: Yes (Hospitalization, Other)
  Sender: FDA-Public Use
  Company Number: DE-PFIZER INC-2011025092

PATIENT
  Age: 86 Year
  Sex: Female

DRUGS (9)
  1. VIANI [Concomitant]
     Dosage: UNK
     Dates: start: 20100531
  2. AMIODARONE HCL [Suspect]
     Indication: ATRIAL FIBRILLATION
     Dosage: 200 MG DAILY
     Route: 048
     Dates: start: 20041201, end: 20100707
  3. CIPROFLOXACIN HYDROCHLORIDE [Concomitant]
  4. LOSARTAN POTASSIUM AND HYDROCHLOROTHIAZIDE [Concomitant]
     Dosage: UNK
  5. THYRONAJOD [Concomitant]
     Dosage: UNK
  6. AMIODARONE HCL [Suspect]
     Indication: TACHYARRHYTHMIA
  7. MARCUMAR [Concomitant]
     Dosage: UNK
  8. TORASEMIDE [Concomitant]
     Dosage: UNK
  9. SALBUTAMOL [Concomitant]
     Dosage: UNK

REACTIONS (3)
  - EOSINOPHILIA MYALGIA SYNDROME [None]
  - COUGH [None]
  - INTERSTITIAL LUNG DISEASE [None]
